FAERS Safety Report 18686436 (Version 4)
Quarter: 2021Q1

REPORT INFORMATION
  Report Type: Spontaneous
  Country: JP (occurrence: JP)
  Receive Date: 20201231
  Receipt Date: 20210210
  Transmission Date: 20210419
  Serious: Yes (Hospitalization)
  Sender: FDA-Public Use
  Company Number: JP-BIOVITRUM-2020JP8069

PATIENT
  Age: 3 Month
  Sex: Male
  Weight: 2 kg

DRUGS (8)
  1. SODIUM FERROUS CITRATE [Concomitant]
     Active Substance: SODIUM FERROUS CITRATE
     Indication: ANAEMIA
     Dates: start: 20200915, end: 20201215
  2. SYNAGIS [Suspect]
     Active Substance: PALIVIZUMAB
     Indication: ANTIVIRAL PROPHYLAXIS
     Route: 030
     Dates: start: 20201214, end: 20201214
  3. ZINC ACETATE [Concomitant]
     Active Substance: ZINC ACETATE
     Dates: start: 20201010
  4. SYNAGIS [Suspect]
     Active Substance: PALIVIZUMAB
     Indication: PREMATURE BABY
  5. BABY D [Concomitant]
     Indication: VITAMIN D DEFICIENCY
     Dosage: 1 GTT
     Dates: start: 20201120
  6. SODIUM FERROUS CITRATE [Concomitant]
     Active Substance: SODIUM FERROUS CITRATE
     Dates: start: 20201216
  7. PHOSRIBBON [Concomitant]
     Indication: BLOOD PHOSPHORUS DECREASED
     Dates: start: 20201127
  8. CALCIUM LACTATE PENTAHYDRATE. [Concomitant]
     Active Substance: CALCIUM LACTATE PENTAHYDRATE
     Indication: CALCIUM DEFICIENCY
     Route: 048
     Dates: start: 20201010

REACTIONS (2)
  - Anaemia [Recovering/Resolving]
  - Neutrophil count decreased [Recovered/Resolved]

NARRATIVE: CASE EVENT DATE: 20201215
